FAERS Safety Report 9252437 (Version 1)
Quarter: 2013Q2

REPORT INFORMATION
  Report Type: Report from Study
  Country: GB (occurrence: GB)
  Receive Date: 20130424
  Receipt Date: 20130424
  Transmission Date: 20140414
  Serious: Yes (Other)
  Sender: FDA-Public Use
  Company Number: GB-TEVA-388260ISR

PATIENT
  Age: 44 Year
  Sex: Female
  Weight: 63 kg

DRUGS (5)
  1. COPAXONE [Suspect]
     Route: 058
     Dates: start: 20130122, end: 20130216
  2. PRIADEL [Concomitant]
     Indication: DEPRESSION
     Dosage: 1000  DAILY; 1000 UNITS UNSPECIFIED
     Route: 048
     Dates: start: 201103
  3. VENLAFAXINE [Concomitant]
     Indication: DEPRESSION
     Dosage: 150  DAILY; 150 UNITS UNSPECIFIED
     Route: 048
     Dates: start: 201104
  4. CEFALEXIN [Concomitant]
     Indication: URINARY TRACT INFECTION
     Dosage: 250  DAILY; 250 UNITS UNSPECIFIED
     Route: 048
  5. LACTULOSE [Concomitant]
     Route: 065

REACTIONS (4)
  - Suicidal ideation [Recovered/Resolved with Sequelae]
  - Panic attack [Recovered/Resolved with Sequelae]
  - Sleep disorder [Recovered/Resolved with Sequelae]
  - Depressed mood [Recovered/Resolved with Sequelae]
